FAERS Safety Report 24052484 (Version 1)
Quarter: 2024Q3

REPORT INFORMATION
  Report Type: Spontaneous
  Country: CZ (occurrence: CZ)
  Receive Date: 20240705
  Receipt Date: 20240705
  Transmission Date: 20241017
  Serious: Yes (Hospitalization, Other)
  Sender: SANDOZ
  Company Number: None

PATIENT
  Age: 51 Year
  Sex: Female

DRUGS (10)
  1. ADALIMUMAB [Suspect]
     Active Substance: ADALIMUMAB\ISOPROPYL ALCOHOL
     Indication: Rheumatoid arthritis
     Route: 065
     Dates: start: 201909, end: 201909
  2. ETANERCEPT [Suspect]
     Active Substance: ETANERCEPT
     Indication: Rheumatoid arthritis
     Dosage: UNK
     Route: 065
     Dates: start: 201910, end: 202011
  3. HYDROXYCHLOROQUINE [Suspect]
     Active Substance: HYDROXYCHLOROQUINE
     Indication: Rheumatoid arthritis
     Dosage: 200 MG, QD
     Route: 065
  4. METHOTREXATE [Suspect]
     Active Substance: METHOTREXATE
     Indication: Rheumatoid arthritis
     Dosage: 10.000MG
     Route: 065
     Dates: start: 202011
  5. METHOTREXATE [Suspect]
     Active Substance: METHOTREXATE
     Indication: Pulmonary sarcoidosis
     Dosage: 15.000MG
     Route: 065
     Dates: start: 201510
  6. METHOTREXATE [Suspect]
     Active Substance: METHOTREXATE
     Dosage: 25.000MG
     Route: 065
     Dates: end: 202011
  7. PREDNISONE [Suspect]
     Active Substance: PREDNISONE
     Indication: Rheumatoid arthritis
     Dosage: AVERAGE DOSE, REDUCING THE CORTICOSTEROID DOSE UNTIL COMPLETE DISCONTINUATION
     Route: 065
     Dates: end: 202008
  8. PREDNISONE [Suspect]
     Active Substance: PREDNISONE
     Indication: Pulmonary sarcoidosis
     Dosage: GRADUAL DETRACTION DURING THE NEXT 6 MONTHS.
     Route: 065
     Dates: start: 202011, end: 202104
  9. SULFASALAZINE [Suspect]
     Active Substance: SULFASALAZINE
     Indication: Rheumatoid arthritis
     Dosage: 2 G, QD
     Route: 065
  10. UPADACITINIB [Suspect]
     Active Substance: UPADACITINIB
     Indication: Rheumatoid arthritis
     Dosage: 15.000MG QD
     Route: 065
     Dates: start: 202108

REACTIONS (5)
  - Joint injury [Unknown]
  - Rash [Unknown]
  - Rheumatoid arthritis [Recovering/Resolving]
  - Infection [Unknown]
  - Herpes zoster [Unknown]

NARRATIVE: CASE EVENT DATE: 20210401
